FAERS Safety Report 19560886 (Version 1)
Quarter: 2021Q3

REPORT INFORMATION
  Report Type: Spontaneous
  Country: FR (occurrence: FR)
  Receive Date: 20210714
  Receipt Date: 20210714
  Transmission Date: 20211014
  Serious: Yes (Other)
  Sender: FDA-Public Use
  Company Number: FR-NOVA LABORATORIES LIMITED-2113825

PATIENT
  Age: 10 Year
  Sex: Female
  Weight: 31.4 kg

DRUGS (7)
  1. METHOTREXATE. [Suspect]
     Active Substance: METHOTREXATE
     Route: 048
     Dates: start: 201902, end: 20210412
  2. METHOTREXATE. [Suspect]
     Active Substance: METHOTREXATE
     Route: 048
     Dates: start: 201902, end: 20210412
  3. FUNGIZONE (AMPHOTERICIN B) [Concomitant]
  4. BETADINE ALCOOLICO (POVIDONE?IODINE) [Concomitant]
  5. PURIXAN [Suspect]
     Active Substance: MERCAPTOPURINE
     Indication: ACUTE LYMPHOCYTIC LEUKAEMIA
     Route: 048
     Dates: start: 2019, end: 20210413
  6. FORLAX [MACROGOL 4000] (MACROGOL 4000) [Concomitant]
  7. BACTRIM [Suspect]
     Active Substance: SULFAMETHOXAZOLE\TRIMETHOPRIM
     Route: 048
     Dates: start: 2019, end: 20210413

REACTIONS (1)
  - Skin lesion [Recovering/Resolving]

NARRATIVE: CASE EVENT DATE: 20210320
